APPROVED DRUG PRODUCT: ETHOSUXIMIDE
Active Ingredient: ETHOSUXIMIDE
Strength: 250MG
Dosage Form/Route: CAPSULE;ORAL
Application: A040430 | Product #001 | TE Code: AB
Applicant: BIONPHARMA INC
Approved: Oct 28, 2002 | RLD: No | RS: No | Type: RX